FAERS Safety Report 25842509 (Version 1)
Quarter: 2025Q3

REPORT INFORMATION
  Report Type: Report from Study
  Country: US (occurrence: US)
  Receive Date: 20250924
  Receipt Date: 20250924
  Transmission Date: 20251020
  Serious: Yes (Other)
  Sender: ALEXION PHARMACEUTICALS
  Company Number: US-AstraZeneca-CH-00955755A

PATIENT
  Sex: Male

DRUGS (15)
  1. TEZEPELUMAB [Suspect]
     Active Substance: TEZEPELUMAB
     Indication: Asthma
     Dosage: 210 MILLIGRAM PER MILLILITRE, Q4W
  2. TEZEPELUMAB [Suspect]
     Active Substance: TEZEPELUMAB
  3. BETAMETHASONE [Concomitant]
     Active Substance: BETAMETHASONE
     Route: 065
  4. CLOTRIMAZOLE AND BETAMETHASONE DIPROPIONATE [Concomitant]
     Active Substance: BETAMETHASONE\BETAMETHASONE DIPROPIONATE\CLOTRIMAZOLE
     Route: 065
  5. CLINDAMYCIN [Concomitant]
     Active Substance: CLINDAMYCIN
     Route: 065
  6. DESONIDE [Concomitant]
     Active Substance: DESONIDE
     Route: 065
  7. KETOCONAZOLE [Concomitant]
     Active Substance: KETOCONAZOLE
     Route: 065
  8. Ipratropium br [Concomitant]
     Indication: Nasal polyps
     Route: 065
  9. TRIAMCINOLONE ACETONIDE [Concomitant]
     Active Substance: TRIAMCINOLONE ACETONIDE
     Indication: Dermatitis atopic
     Dosage: 1 DOSAGE FORM, QD
     Route: 065
  10. ZAFIRLUKAST [Concomitant]
     Active Substance: ZAFIRLUKAST
     Indication: Seasonal allergy
     Dosage: 1 DOSAGE FORM, QD
  11. EPIPEN [Concomitant]
     Active Substance: EPINEPHRINE
     Indication: Anaphylactic reaction
     Route: 065
  12. XHANCE [Concomitant]
     Active Substance: FLUTICASONE PROPIONATE
     Indication: Nasal polyps
     Dosage: 1 DOSAGE FORM, BID
  13. CLARITHROMYCIN [Concomitant]
     Active Substance: CLARITHROMYCIN
  14. LEVOFLOXACIN [Concomitant]
     Active Substance: LEVOFLOXACIN
  15. PREDNISONE [Concomitant]
     Active Substance: PREDNISONE

REACTIONS (18)
  - Immunosuppression [Unknown]
  - Eczema nummular [Unknown]
  - Wheezing [Unknown]
  - Rales [Unknown]
  - Rash [Unknown]
  - Eczema [Unknown]
  - Skin lesion [Unknown]
  - Seborrhoeic keratosis [Unknown]
  - Swelling [Unknown]
  - Dry skin [Unknown]
  - Pruritus [Unknown]
  - Pain [Unknown]
  - Urticaria [Unknown]
  - Skin mass [Unknown]
  - Asthma [Unknown]
  - Cough [Unknown]
  - Seasonal allergy [Unknown]
  - Dermatitis contact [Unknown]
